FAERS Safety Report 4749596-0 (Version None)
Quarter: 2005Q3

REPORT INFORMATION
  Report Type: 
  Country: None (occurrence: None)
  Receive Date: 20050819
  Receipt Date: 20050819
  Transmission Date: 20060218
  Serious: No
  Sender: FDA-Public Use
  Company Number: None

PATIENT
  Age: 28 Year
  Sex: Female

DRUGS (2)
  1. TRI-SPRINTEC [Suspect]
     Indication: MENSTRUATION IRREGULAR
  2. TRI-SPRINTEC [Suspect]
     Indication: ORAL CONTRACEPTION

REACTIONS (2)
  - DRUG INEFFECTIVE [None]
  - MOOD SWINGS [None]
